FAERS Safety Report 19473936 (Version 1)
Quarter: 2021Q2

REPORT INFORMATION
  Report Type: Spontaneous
  Country: NL (occurrence: NL)
  Receive Date: 20210629
  Receipt Date: 20210629
  Transmission Date: 20210717
  Serious: Yes (Other)
  Sender: FDA-Public Use
  Company Number: NL-PFIZER INC-2021699701

PATIENT
  Sex: Female
  Weight: 71 kg

DRUGS (2)
  1. CYKLOKAPRON [Suspect]
     Active Substance: TRANEXAMIC ACID
     Dosage: 1000 MG
     Dates: start: 202011
  2. CYKLOKAPRON [Suspect]
     Active Substance: TRANEXAMIC ACID
     Indication: COAGULOPATHY
     Dosage: 500 MG, 3X/DAY

REACTIONS (1)
  - Cerebrovascular accident [Not Recovered/Not Resolved]
